FAERS Safety Report 4896971-X (Version None)
Quarter: 2006Q1

REPORT INFORMATION
  Report Type: 
  Country: None (occurrence: None)
  Receive Date: 20060127
  Receipt Date: 20060111
  Transmission Date: 20060701
  Serious: Yes (Death, Other)
  Sender: FDA-Public Use
  Company Number: GB200601001517

PATIENT
  Sex: Female

DRUGS (1)
  1. XIGRIS [Suspect]

REACTIONS (1)
  - HAEMORRHAGE INTRACRANIAL [None]
